FAERS Safety Report 12459034 (Version 1)
Quarter: 2016Q2

REPORT INFORMATION
  Report Type: Spontaneous
  Country: US (occurrence: None)
  Receive Date: 20160610
  Receipt Date: 20160610
  Transmission Date: 20160815
  Serious: Yes (Disabling)
  Sender: FDA-Public Use
  Company Number: None

PATIENT
  Age: 35 Year
  Sex: Female
  Weight: 106.6 kg

DRUGS (13)
  1. CLONAZEPAM. [Concomitant]
     Active Substance: CLONAZEPAM
  2. DOCUSATE SODIUM. [Concomitant]
     Active Substance: DOCUSATE SODIUM
  3. LEVOTHYROXIN [Concomitant]
     Active Substance: LEVOTHYROXINE
  4. ADVAIR HFA [Concomitant]
     Active Substance: FLUTICASONE PROPIONATE\SALMETEROL XINAFOATE
  5. CALTRATE [Concomitant]
     Active Substance: CALCIUM CARBONATE
  6. ABILIFY [Concomitant]
     Active Substance: ARIPIPRAZOLE
  7. ONE A DAY WOMEN^S VITAMINS (GUMMIES) [Concomitant]
  8. EFFEXOR [Concomitant]
     Active Substance: VENLAFAXINE HYDROCHLORIDE
  9. LAXATIVE [Concomitant]
     Active Substance: UNSPECIFIED INGREDIENT
  10. LITHIUM CARBONATE. [Suspect]
     Active Substance: LITHIUM CARBONATE
     Indication: AFFECTIVE DISORDER
     Dosage: 1 PILL AT BEDTIME BY MOUTH
     Route: 048
     Dates: start: 2014
  11. ALBUTEROL SULFATE. [Concomitant]
     Active Substance: ALBUTEROL SULFATE
  12. LITHIUM. [Concomitant]
     Active Substance: LITHIUM
  13. METFORMIN [Concomitant]
     Active Substance: METFORMIN HYDROCHLORIDE

REACTIONS (2)
  - Libido disorder [None]
  - Depression [None]

NARRATIVE: CASE EVENT DATE: 2014
